FAERS Safety Report 19879497 (Version 2)
Quarter: 2021Q4

REPORT INFORMATION
  Report Type: Spontaneous
  Country: CN (occurrence: CN)
  Receive Date: 20210924
  Receipt Date: 20211001
  Transmission Date: 20220303
  Serious: Yes (Other)
  Sender: FDA-Public Use
  Company Number: CN-MLMSERVICE-2021090930976361

PATIENT
  Age: 50 Year
  Sex: Female

DRUGS (3)
  1. OXALIPLATIN [Suspect]
     Active Substance: OXALIPLATIN
     Indication: Small intestine carcinoma metastatic
     Dosage: OXALIPLATIN 200 MG D1 (2 CYCLE)
     Dates: start: 20200428, end: 20200521
  2. CAPECITABINE [Suspect]
     Active Substance: CAPECITABINE
     Indication: Small intestine carcinoma metastatic
     Dosage: CAPECITABINE 1.5 PO BID D1-14 (2 CYCLE)
     Route: 048
     Dates: start: 20200428, end: 20200521
  3. TRASTUZUMAB [Suspect]
     Active Substance: TRASTUZUMAB
     Indication: Small intestine carcinoma metastatic
     Dates: start: 20200616, end: 20200804

REACTIONS (2)
  - Myelosuppression [Unknown]
  - Gastrointestinal disorder [Unknown]

NARRATIVE: CASE EVENT DATE: 20200101
